FAERS Safety Report 9016368 (Version 2)
Quarter: 2013Q1

REPORT INFORMATION
  Report Type: Report from Study
  Country: FR (occurrence: FR)
  Receive Date: 20130116
  Receipt Date: 20130208
  Transmission Date: 20140127
  Serious: Yes (Hospitalization)
  Sender: FDA-Public Use
  Company Number: FR-ROCHE-1178337

PATIENT
  Age: 49 Year
  Sex: Female
  Weight: 62 kg

DRUGS (4)
  1. TRASTUZUMAB [Suspect]
     Indication: BREAST CANCER
     Dosage: LOADING DOSE
     Route: 042
     Dates: start: 20120924
  2. TRASTUZUMAB [Suspect]
     Dosage: LAST DOSE TAKEN PRIOR TO SAE ON 24/DEC/2012.MAINTENANCE DOSE
     Route: 042
  3. ATARAX [Concomitant]
     Route: 065
  4. PLACEBO [Suspect]
     Indication: BREAST CANCER
     Dosage: LAST DOSE PRIOR TO SAE: 24/DEC/2012
     Route: 042
     Dates: start: 20120924

REACTIONS (1)
  - Pulmonary embolism [Recovered/Resolved]
